FAERS Safety Report 8607026-2 (Version None)
Quarter: 2012Q3

REPORT INFORMATION
  Report Type: 
  Country: None (occurrence: None)
  Receive Date: 20120821
  Receipt Date: 20120810
  Transmission Date: 20120928
  Serious: Yes (Hospitalization)
  Sender: FDA-Public Use
  Company Number: DE-PAR PHARMACEUTICAL, INC-2012SCPR004315

PATIENT

DRUGS (8)
  1. LORAZEPAM [Interacting]
     Indication: SCHIZOPHRENIA, CATATONIC TYPE
     Dosage: 3 TO 4.5 MG PER DAY,DIVIDED INTO THREE SINGLE DOSES
     Route: 048
  2. HALOPERIDOL DECANOATE [Suspect]
     Indication: SCHIZOPHRENIA, CATATONIC TYPE
     Dosage: 100 MG, EVERY 4 WEEKS
     Route: 065
  3. HALOPERIDOL [Suspect]
     Indication: SCHIZOPHRENIA, CATATONIC TYPE
     Dosage: 5 MG, / DAY
     Route: 065
  4. CLOZAPINE [Suspect]
     Indication: SCHIZOPHRENIA, CATATONIC TYPE
     Dosage: 100 MG, / DAY
     Route: 065
  5. LORAZEPAM [Interacting]
     Dosage: 1-1-1 MG
     Route: 048
  6. OLANZAPINE [Interacting]
     Indication: SCHIZOPHRENIA, CATATONIC TYPE
     Dosage: 10 MG, / DAY
     Route: 065
  7. OLANZAPINE [Interacting]
     Dosage: 10 MG, SINGLE
     Route: 048
  8. HALOPERIDOL [Suspect]
     Dosage: 2 MG, / DAY
     Route: 065

REACTIONS (9)
  - DRUG INTERACTION [None]
  - DEMENTIA [None]
  - LEUKOPENIA [None]
  - HYPOTHERMIA [None]
  - LIVER FUNCTION TEST ABNORMAL [None]
  - CATATONIA [None]
  - PUPIL FIXED [None]
  - OXYGEN SATURATION DECREASED [None]
  - MIOSIS [None]
